FAERS Safety Report 14873364 (Version 8)
Quarter: 2022Q1

REPORT INFORMATION
  Report Type: Spontaneous
  Country: US (occurrence: US)
  Receive Date: 20180510
  Receipt Date: 20220106
  Transmission Date: 20220424
  Serious: No
  Sender: FDA-Public Use
  Company Number: US-PFIZER INC-2018190823

PATIENT
  Age: 47 Year
  Sex: Female

DRUGS (1)
  1. GABAPENTIN [Suspect]
     Active Substance: GABAPENTIN
     Indication: Mitochondrial DNA mutation
     Dosage: 400 MG, 1X/DAY IN THE EVENING (HS)
     Route: 048
     Dates: start: 19970522

REACTIONS (5)
  - Off label use [Unknown]
  - Drug intolerance [Unknown]
  - Nervous system disorder [Recovered/Resolved]
  - Anxiety [Recovered/Resolved]
  - Drug hypersensitivity [Unknown]

NARRATIVE: CASE EVENT DATE: 19970522
